FAERS Safety Report 21779890 (Version 1)
Quarter: 2022Q4

REPORT INFORMATION
  Report Type: Report from Study
  Country: CO (occurrence: CO)
  Receive Date: 20221226
  Receipt Date: 20221226
  Transmission Date: 20230113
  Serious: Yes (Other)
  Sender: FDA-Public Use
  Company Number: CO-ABBVIE-4249428

PATIENT
  Sex: Female

DRUGS (1)
  1. VENETOCLAX [Suspect]
     Active Substance: VENETOCLAX
     Indication: Acute myeloid leukaemia
     Dosage: FIRST ADMIN DATE: 23 OCT 2022?LAST ADMIN DATE: 14 DEC 2022
     Route: 048

REACTIONS (4)
  - Skin ulcer [Not Recovered/Not Resolved]
  - Skin infection [Not Recovered/Not Resolved]
  - Fluid retention [Not Recovered/Not Resolved]
  - Skin necrosis [Unknown]

NARRATIVE: CASE EVENT DATE: 20200101
